FAERS Safety Report 9602881 (Version 5)
Quarter: 2013Q4

REPORT INFORMATION
  Report Type: Spontaneous
  Country: JP (occurrence: JP)
  Receive Date: 20131007
  Receipt Date: 20131119
  Transmission Date: 20140711
  Serious: Yes (Death, Other)
  Sender: FDA-Public Use
  Company Number: JP-CELGENEUS-087-21880-13100262

PATIENT
  Age: 67 Year
  Sex: Female

DRUGS (12)
  1. REVLIMID [Suspect]
     Indication: POEMS SYNDROME
     Dosage: 15 MILLIGRAM
     Route: 048
     Dates: start: 20110603, end: 20120301
  2. LENADEX [Suspect]
     Indication: POEMS SYNDROME
     Dosage: 20 MILLIGRAM
     Route: 048
     Dates: start: 20120217, end: 20120301
  3. THALED [Suspect]
     Indication: POEMS SYNDROME
     Dosage: 100 MILLIGRAM
     Route: 048
     Dates: start: 20120301, end: 20120408
  4. THALED [Suspect]
     Dosage: 100 MILLIGRAM
     Route: 048
     Dates: start: 20120419, end: 20120501
  5. BAYASPIRIN [Concomitant]
     Indication: THROMBOSIS PROPHYLAXIS
     Dosage: 100 MILLIGRAM
     Route: 048
     Dates: start: 20110603, end: 20120301
  6. TERNELIN [Concomitant]
     Indication: PRODUCT USED FOR UNKNOWN INDICATION
     Dosage: 3 MILLIGRAM
     Route: 048
     Dates: start: 20110921, end: 20111125
  7. ALDACTONE A [Concomitant]
     Indication: PRODUCT USED FOR UNKNOWN INDICATION
     Dosage: 25 MILLIGRAM
     Route: 048
     Dates: start: 20111213
  8. OMEPRAL [Concomitant]
     Indication: GASTROOESOPHAGEAL REFLUX DISEASE
     Dosage: 10 MILLIGRAM
     Route: 048
     Dates: end: 20120501
  9. THYRADIN S [Concomitant]
     Indication: HYPOTHYROIDISM
     Dosage: 100 MICROGRAM
     Route: 048
     Dates: start: 200809, end: 20120501
  10. BISOLVON [Concomitant]
     Indication: BRONCHITIS
     Dosage: 12 MILLIGRAM
     Route: 048
     Dates: end: 20120501
  11. TRAMCET [Concomitant]
     Indication: ANALGESIC THERAPY
     Dosage: 3 TABLET
     Route: 048
     Dates: end: 20120501
  12. WARFARIN [Concomitant]
     Indication: THROMBOSIS PROPHYLAXIS
     Dosage: 1.25 MILLIGRAM
     Route: 048
     Dates: start: 20120301, end: 20120408

REACTIONS (3)
  - Atrial thrombosis [Fatal]
  - Pneumothorax [Unknown]
  - Pneumomediastinum [Unknown]
